FAERS Safety Report 9396623 (Version 1)
Quarter: 2013Q3

REPORT INFORMATION
  Report Type: Spontaneous
  Country: US (occurrence: US)
  Receive Date: 20130711
  Receipt Date: 20130711
  Transmission Date: 20140515
  Serious: Yes (Other)
  Sender: FDA-Public Use
  Company Number: US-RB-055887-13

PATIENT
  Sex: Female

DRUGS (9)
  1. GENERIC BUPRENORPHINE [Suspect]
     Indication: DRUG DEPENDENCE
     Route: 060
     Dates: start: 201201, end: 201205
  2. NICOTINE [Suspect]
     Indication: NICOTINE DEPENDENCE
     Dosage: ONE PACK OF CIGARETTES DAILY
     Route: 055
     Dates: start: 201110, end: 20120519
  3. COCAINE [Suspect]
     Indication: SUBSTANCE ABUSE
     Dosage: DOSING DETAILS UNKNOWN
     Route: 065
     Dates: start: 201110, end: 20120519
  4. HEROIN [Suspect]
     Indication: DRUG DEPENDENCE
     Dosage: DOSING DETAILS UNKNOWN
     Route: 042
     Dates: start: 201110, end: 20120519
  5. UNSPECIFIED [Suspect]
     Indication: DRUG DEPENDENCE
     Dosage: DOSING DETAILS UNKNOWN
     Route: 065
     Dates: start: 201110, end: 201201
  6. FENTANYL [Suspect]
     Indication: PRODUCT USED FOR UNKNOWN INDICATION
     Dosage: DOSING DETAILS UNKNOWN
     Route: 065
  7. XANAX [Concomitant]
     Indication: ANXIETY
     Route: 048
     Dates: start: 201111
  8. TRAZODONE [Concomitant]
     Indication: SLEEP DISORDER
     Route: 048
     Dates: start: 201111
  9. PRISTIQ [Concomitant]
     Indication: DEPRESSION
     Route: 048
     Dates: start: 201111

REACTIONS (3)
  - Exposure during pregnancy [Recovered/Resolved]
  - Drug abuse [Recovered/Resolved]
  - Premature delivery [Recovered/Resolved]
